FAERS Safety Report 13865655 (Version 1)
Quarter: 2017Q3

REPORT INFORMATION
  Report Type: Spontaneous
  Country: GB (occurrence: GB)
  Receive Date: 20170814
  Receipt Date: 20170814
  Transmission Date: 20171127
  Serious: Yes (Hospitalization)
  Sender: FDA-Public Use
  Company Number: PHFR2017GB006456

PATIENT
  Age: 71 Year
  Sex: Female
  Weight: 100 kg

DRUGS (1)
  1. BISOPROLOL [Suspect]
     Active Substance: BISOPROLOL
     Indication: ATRIAL FLUTTER
     Dosage: 2.5 MG, BID
     Route: 048
     Dates: start: 20170719, end: 20170727

REACTIONS (1)
  - Sinus node dysfunction [Recovering/Resolving]
